FAERS Safety Report 7365350 (Version 4)
Quarter: 2012Q4

REPORT INFORMATION
  Report Type: Report from Study
  Country: JP (occurrence: JP)
  Receive Date: 20100425
  Receipt Date: 20120917
  Transmission Date: 20130627
  Serious: Yes (Death, Hospitalization)
  Sender: FDA-Public Use
  Company Number: JP-BRISTOL-MYERS SQUIBB COMPANY-14998553

PATIENT
  Age: 83 Year
  Sex: Female
  Weight: 40 kg

DRUGS (7)
  1. SPRYCEL [Suspect]
     Indication: CHRONIC MYELOID LEUKAEMIA
     Dosage: Route: Gastrostomy, also taken 50mg/day
     Dates: start: 20100113, end: 20100218
  2. GASTER [Concomitant]
     Indication: PROPHYLAXIS AGAINST GASTROINTESTINAL ULCER
     Dosage: Formulation powder.
     Route: 048
  3. CEFZON [Concomitant]
     Indication: INFECTION
     Dosage: Granules.
     Route: 048
     Dates: start: 20100118, end: 20100123
  4. KLARICID [Concomitant]
     Indication: INFECTION
     Dosage: Syrup.
     Route: 048
     Dates: start: 20100125, end: 20100203
  5. VFEND [Concomitant]
     Indication: INFECTION
     Dosage: Tablet.
     Route: 048
     Dates: start: 20100202, end: 20100217
  6. CEFPIROME SULFATE [Concomitant]
     Indication: INFECTION
     Dosage: 1Df-8 units not specified.Injection.
     Route: 042
     Dates: start: 20100112, end: 20100118
  7. BIKLIN [Concomitant]
     Indication: INFECTION
     Dosage: Injection.
     Route: 030
     Dates: start: 20100201, end: 20100208

REACTIONS (2)
  - Acute respiratory failure [Fatal]
  - Pleural effusion [Not Recovered/Not Resolved]
